FAERS Safety Report 23141546 (Version 1)
Quarter: 2023Q4

REPORT INFORMATION
  Report Type: Report from Study
  Country: US (occurrence: None)
  Receive Date: 20231103
  Receipt Date: 20231103
  Transmission Date: 20240110
  Serious: Yes (Other)
  Sender: FDA-Public Use
  Company Number: 2023A249495

PATIENT
  Sex: Female

DRUGS (2)
  1. LYNPARZA [Suspect]
     Active Substance: OLAPARIB
     Indication: Malignant peritoneal neoplasm
     Route: 048
     Dates: start: 202309
  2. LYNPARZA [Suspect]
     Active Substance: OLAPARIB
     Indication: Ovarian cancer
     Route: 048
     Dates: start: 202309

REACTIONS (16)
  - Cardiac flutter [Unknown]
  - Brain fog [Unknown]
  - Abdominal pain [Unknown]
  - Neuropathy peripheral [Unknown]
  - Tremor [Unknown]
  - Constipation [Unknown]
  - Headache [Unknown]
  - Cough [Unknown]
  - Arthritis [Unknown]
  - Chest discomfort [Unknown]
  - Somnolence [Unknown]
  - Nausea [Unknown]
  - Stress [Unknown]
  - Depression [Unknown]
  - Oral pain [Unknown]
  - Underdose [Unknown]
